FAERS Safety Report 9517329 (Version 1)
Quarter: 2013Q1

REPORT INFORMATION
  Report Type: Spontaneous
  Country: US (occurrence: None)
  Receive Date: 20130305
  Receipt Date: 20130305
  Transmission Date: 20140127
  Serious: Yes (Other)
  Sender: FDA-Public Use
  Company Number: 163-21880-12122092

PATIENT
  Age: 93 Year
  Sex: Male
  Weight: 69.85 kg

DRUGS (8)
  1. REVLIMID ( LENALIDOMIDE) ( 10 MILLIGRAM, CAPSULES) [Suspect]
     Dosage: 21 IN 21 D
     Route: 048
     Dates: start: 20120501, end: 20120717
  2. APAP WITH CODEINE (PANADEINE CO) (UNKNOWN) [Concomitant]
  3. COUMADIN (WARFARIN SODIUM) (UNKNOWN) [Concomitant]
  4. FLOMAX (TAMSULOSIN HYDROCHLORIDE) (UNKNOWN) [Concomitant]
  5. LASIX (FUROSEMIDE) (UNKNOWN) [Concomitant]
  6. PROSCAR (FINASTERIDE) (UNKNOWN) [Concomitant]
  7. TIMOLOL (TIMOLOL) (UNKNOWN) [Concomitant]
  8. APAP (PARACETAMOL) (UNKNOWN) [Concomitant]

REACTIONS (2)
  - Fatigue [None]
  - Dyspnoea [None]
